FAERS Safety Report 4887569-8 (Version None)
Quarter: 2006Q1

REPORT INFORMATION
  Report Type: 
  Country: None (occurrence: None)
  Receive Date: 20060123
  Receipt Date: 20060113
  Transmission Date: 20060701
  Serious: Yes (Other)
  Sender: FDA-Public Use
  Company Number: PHEH2006US00889

PATIENT

DRUGS (1)
  1. ZOMETA [Suspect]

REACTIONS (3)
  - JAW DISORDER [None]
  - ORAL SOFT TISSUE DISORDER [None]
  - PRIMARY SEQUESTRUM [None]
